FAERS Safety Report 19151047 (Version 2)
Quarter: 2021Q3

REPORT INFORMATION
  Report Type: Spontaneous
  Country: US (occurrence: US)
  Receive Date: 20210419
  Receipt Date: 20210705
  Transmission Date: 20211014
  Serious: Yes (Hospitalization)
  Sender: FDA-Public Use
  Company Number: US-TEVA-2021-US-1901715

PATIENT
  Sex: Female

DRUGS (2)
  1. ALPRAZOLAM. [Suspect]
     Active Substance: ALPRAZOLAM
     Dosage: 3 MILLIGRAM DAILY;
     Route: 065
     Dates: start: 20210406
  2. ALPRAZOLAM. [Suspect]
     Active Substance: ALPRAZOLAM
     Indication: ANXIETY
     Route: 065

REACTIONS (8)
  - Fear [Unknown]
  - Drug ineffective [Unknown]
  - Insomnia [Unknown]
  - Balance disorder [Unknown]
  - Product quality issue [Unknown]
  - Tremor [Unknown]
  - Blood pressure increased [Unknown]
  - Gait disturbance [Unknown]
